FAERS Safety Report 4543900-4 (Version None)
Quarter: 2005Q1

REPORT INFORMATION
  Report Type: 
  Country: None (occurrence: None)
  Receive Date: 20050103
  Receipt Date: 20040601
  Transmission Date: 20050727
  Serious: Yes (Disabling)
  Sender: FDA-Public Use
  Company Number: PHBS2004IT07319

PATIENT
  Age: 29 Year
  Sex: Female

DRUGS (4)
  1. CARBAMAZEPINE [Suspect]
     Indication: EPILEPSY
     Dosage: 1600 MG/DAY
  2. FLUCONAZOLE (NGX) (FLUCONAZOLE) [Suspect]
     Indication: FUNGAL INFECTION
     Dosage: 150 MG/DAY
  3. LAMOTRIGINE [Concomitant]
  4. BARBEXACLONE (BARBEXACLONE) [Concomitant]

REACTIONS (15)
  - CEREBELLAR SYNDROME [None]
  - DIPLOPIA [None]
  - DIZZINESS [None]
  - DRUG INTERACTION [None]
  - DRUG LEVEL INCREASED [None]
  - DRUG TOXICITY [None]
  - EYE MOVEMENT DISORDER [None]
  - GAIT DISTURBANCE [None]
  - GAMMA-GLUTAMYLTRANSFERASE INCREASED [None]
  - NAUSEA [None]
  - NYSTAGMUS [None]
  - OSCILLOPSIA [None]
  - VISION BLURRED [None]
  - VOMITING [None]
  - WHITE BLOOD CELL COUNT DECREASED [None]
